FAERS Safety Report 24800987 (Version 2)
Quarter: 2025Q1

REPORT INFORMATION
  Report Type: Spontaneous
  Country: PL (occurrence: PL)
  Receive Date: 20250102
  Receipt Date: 20250116
  Transmission Date: 20250408
  Serious: Yes (Life-Threatening, Hospitalization)
  Sender: TEVA
  Company Number: PL-TEVA-VS-3280707

PATIENT
  Age: 3 Year
  Sex: Male

DRUGS (6)
  1. CYCLOSPORINE [Suspect]
     Active Substance: CYCLOSPORINE
     Indication: CTLA4 deficiency
     Route: 065
  2. METHYLPREDNISOLONE [Suspect]
     Active Substance: METHYLPREDNISOLONE
     Indication: CTLA4 deficiency
     Route: 065
  3. HUMAN IMMUNOGLOBULIN G [Suspect]
     Active Substance: HUMAN IMMUNOGLOBULIN G
     Indication: Immune thrombocytopenia
     Route: 042
  4. HUMAN IMMUNOGLOBULIN G [Suspect]
     Active Substance: HUMAN IMMUNOGLOBULIN G
     Indication: Immune thrombocytopenia
     Route: 042
  5. ETOPOSIDE [Suspect]
     Active Substance: ETOPOSIDE
     Indication: CTLA4 deficiency
     Route: 065
  6. DEXAMETHASONE [Suspect]
     Active Substance: DEXAMETHASONE
     Indication: Immune thrombocytopenia
     Route: 065

REACTIONS (3)
  - Acute kidney injury [Recovered/Resolved]
  - Drug ineffective [Unknown]
  - N-terminal prohormone brain natriuretic peptide increased [Recovered/Resolved]
